FAERS Safety Report 7460071-5 (Version None)
Quarter: 2011Q2

REPORT INFORMATION
  Report Type: 
  Country: None (occurrence: None)
  Receive Date: 20110505
  Receipt Date: 20110422
  Transmission Date: 20111010
  Serious: Yes (Other)
  Sender: FDA-Public Use
  Company Number: PHHY2011US34311

PATIENT
  Sex: Female

DRUGS (7)
  1. CONCERTA [Concomitant]
  2. FLEXERIL [Concomitant]
  3. ZYRTEC-D 12 HOUR [Concomitant]
  4. PREDNISONE [Concomitant]
     Dosage: 10 MG, UNK
  5. TASIGNA [Suspect]
     Dosage: 600 MG, BID
     Route: 048
  6. BENADRYL [Concomitant]
  7. NEXIUM [Concomitant]

REACTIONS (12)
  - DYSPNOEA [None]
  - ARTHRALGIA [None]
  - OEDEMA [None]
  - RASH GENERALISED [None]
  - MYALGIA [None]
  - RASH ERYTHEMATOUS [None]
  - PLEURAL EFFUSION [None]
  - PRURITUS [None]
  - ALOPECIA [None]
  - COUGH [None]
  - BLISTER [None]
  - DECREASED APPETITE [None]
